FAERS Safety Report 19622286 (Version 2)
Quarter: 2021Q3

REPORT INFORMATION
  Report Type: Report from Study
  Country: US (occurrence: US)
  Receive Date: 20210728
  Receipt Date: 20210816
  Transmission Date: 20211014
  Serious: No
  Sender: FDA-Public Use
  Company Number: NVSC2021US167403

PATIENT
  Sex: Female

DRUGS (1)
  1. PIQRAY [Suspect]
     Active Substance: ALPELISIB
     Indication: BREAST CANCER
     Dosage: UNK
     Route: 065

REACTIONS (6)
  - Rash [Unknown]
  - Hypersensitivity [Unknown]
  - Pruritus [Unknown]
  - Platelet count decreased [Unknown]
  - Blister [Unknown]
  - Mouth ulceration [Unknown]
